FAERS Safety Report 20206106 (Version 1)
Quarter: 2021Q4

REPORT INFORMATION
  Report Type: Spontaneous
  Country: US (occurrence: None)
  Receive Date: 20211217
  Receipt Date: 20211217
  Transmission Date: 20220303
  Serious: Yes (Other)
  Sender: FDA-Public Use
  Company Number: None

PATIENT
  Age: 61 Year
  Sex: Female
  Weight: 54 kg

DRUGS (8)
  1. RHOFADE [Suspect]
     Active Substance: OXYMETAZOLINE HYDROCHLORIDE
     Indication: Rosacea
     Dosage: FREQUENCY : DAILY;?
     Route: 061
     Dates: start: 20210928, end: 20210930
  2. FISH [Concomitant]
     Active Substance: FISH
  3. FLAX [Concomitant]
  4. Borage [Concomitant]
  5. DIETARY SUPPLEMENT [Concomitant]
     Active Substance: DIETARY SUPPLEMENT
  6. Hyluronic acid [Concomitant]
  7. Multi vitamn [Concomitant]
  8. ZINC [Concomitant]
     Active Substance: ZINC

REACTIONS (1)
  - Rosacea [None]

NARRATIVE: CASE EVENT DATE: 20210930
